FAERS Safety Report 8994642 (Version 1)
Quarter: 2012Q4

REPORT INFORMATION
  Report Type: Spontaneous
  Country: US (occurrence: None)
  Receive Date: 20121221
  Receipt Date: 20121221
  Transmission Date: 20130627
  Serious: Yes (Hospitalization)
  Sender: FDA-Public Use
  Company Number: AUR-APL-2012-05341

PATIENT
  Age: 63 Year
  Sex: Female
  Weight: 94.79 kg

DRUGS (12)
  1. LISINOPRIL (LISINOPRIL) [Suspect]
     Indication: HYPERTENSION
     Dosage: (10 mg, 1 D)
  2. LYRICA (PREGABALIN) [Suspect]
     Indication: FIBROMYALGIA
     Dosage: 300 mg (100 mg, 3 in 1 D)
     Route: 048
     Dates: start: 2011
  3. ATORVASTATIN CALCIUM (ATORVASTATIN CALCIUM) [Suspect]
     Indication: HIGH CHOLESTEROL
     Dosage: (80 mg, 1 D)
  4. OMEPRAZOLE (OMEPRAZOLE) [Suspect]
     Indication: GASTROOESOPHAGEAL REFLUX DISEASE
     Dosage: (20.6 mg, 1 D)
  5. TAMSULOSIN HYDROCHLORIDE (TAMSULOSIN HYDROCHLORIDE) [Suspect]
     Indication: BLADDER OBSTRUCTION
     Dosage: (0.4 mg, 1 D)
     Route: 048
  6. ACETYLSALICYLIC ACID (ACETYLSALICYLIC ACID) [Suspect]
     Indication: HYPERTENSION
     Dosage: (81 mg, 1 D)
  7. METHADONE (METHADONE) [Suspect]
     Indication: BACK DISORDER
     Dosage: 30 mg (10 mg, 3 in 1 D)
  8. ABILIFY (ARIPIRAZOLE) [Suspect]
     Indication: DEPRESSION
     Dosage: splitting 15 mg tablet daily
     Route: 048
  9. VITAMIN D (ERGOCALCIFEROL) [Suspect]
     Indication: VITAMIN D DEFICIENCY
     Dosage: (50000 IU, 1 wk)
  10. BISACODYL (BISACODYL) [Suspect]
     Indication: IRRITABLE BOWEL SYNDROME
     Dosage: 5 mg, 1 D
  11. ALLEGRA (FEXOFENADINE) [Suspect]
     Indication: HYPERSENSITIVITY
     Dosage: (1 D)
  12. OSTEO BI-FLEX (OSTEO BI-FLEX) [Suspect]
     Indication: BACK PAIN
     Dosage: (1 D)

REACTIONS (1)
  - Drug interaction [None]
